FAERS Safety Report 6305170-6 (Version None)
Quarter: 2009Q3

REPORT INFORMATION
  Report Type: 
  Country: None (occurrence: None)
  Receive Date: 20090811
  Receipt Date: 20090731
  Transmission Date: 20100115
  Serious: Yes (Hospitalization)
  Sender: FDA-Public Use
  Company Number: JP-SANOFI-SYNTHELABO-F01200900037

PATIENT
  Sex: Male
  Weight: 85 kg

DRUGS (4)
  1. GASTER [Concomitant]
     Dosage: 20 MG
     Route: 048
     Dates: start: 20070607
  2. DIOVAN [Concomitant]
     Indication: HYPERTENSION
     Dosage: 80 MG
     Route: 048
     Dates: start: 20070828
  3. CLOPIDOGREL [Suspect]
     Indication: CEREBROVASCULAR DISORDER
     Dosage: 75 MG
     Route: 048
     Dates: start: 20070607
  4. NORVASC [Concomitant]
     Indication: HYPERTENSION
     Dosage: 2.5 MG
     Route: 048
     Dates: start: 20071026

REACTIONS (2)
  - CHOLECYSTITIS ACUTE [None]
  - CHOLELITHIASIS [None]
